FAERS Safety Report 18877850 (Version 1)
Quarter: 2021Q1

REPORT INFORMATION
  Report Type: Spontaneous
  Country: US (occurrence: US)
  Receive Date: 20210210
  Receipt Date: 20210210
  Transmission Date: 20210420
  Serious: Yes (Hospitalization, Other)
  Sender: FDA-Public Use
  Company Number: None

PATIENT
  Sex: Female

DRUGS (18)
  1. CHOLESTYRAM LITE [Concomitant]
  2. ZYRTEC ALLGY [Concomitant]
  3. IMFINZI [Concomitant]
     Active Substance: DURVALUMAB
  4. VITAMIN B12 [Concomitant]
     Active Substance: CYANOCOBALAMIN
  5. VITAMIN D3 [Concomitant]
     Active Substance: CHOLECALCIFEROL
  6. BUDESONIDE. [Concomitant]
     Active Substance: BUDESONIDE
  7. DIPHEN/ATROP [Concomitant]
     Active Substance: ATROPINE SULFATE\DIPHENOXYLATE
  8. MONTELUKAST [Concomitant]
     Active Substance: MONTELUKAST SODIUM
  9. PREDNISONE. [Concomitant]
     Active Substance: PREDNISONE
  10. RESTASIS MUL EMU [Concomitant]
  11. TOPIRAMATE. [Concomitant]
     Active Substance: TOPIRAMATE
  12. OMEPRAZOLE. [Concomitant]
     Active Substance: OMEPRAZOLE
  13. TRELEGY ELLIPT [Concomitant]
  14. ALBUTEROL NEB [Concomitant]
     Active Substance: ALBUTEROL
  15. GABAPENTIN. [Concomitant]
     Active Substance: GABAPENTIN
  16. GILENYA [Suspect]
     Active Substance: FINGOLIMOD HYDROCHLORIDE
     Indication: MULTIPLE SCLEROSIS
     Route: 048
     Dates: start: 20180208
  17. LISINOPRIL. [Concomitant]
     Active Substance: LISINOPRIL
  18. OMEGA?3 ACIDS [Concomitant]
     Active Substance: OMEGA-3 FATTY ACIDS

REACTIONS (1)
  - Neoplasm malignant [None]
